FAERS Safety Report 13069929 (Version 4)
Quarter: 2017Q1

REPORT INFORMATION
  Report Type: Spontaneous
  Country: US (occurrence: US)
  Receive Date: 20161228
  Receipt Date: 20170227
  Transmission Date: 20170428
  Serious: No
  Sender: FDA-Public Use
  Company Number: US-PFIZER INC-2016589808

PATIENT
  Age: 78 Year
  Sex: Female

DRUGS (2)
  1. BABY ASPIRIN [Concomitant]
     Active Substance: ASPIRIN
     Dosage: LOW DOSE (UNKNOWN)
  2. NIFEDIPINE. [Suspect]
     Active Substance: NIFEDIPINE
     Indication: MYOCARDIAL INFARCTION
     Dosage: UNSPECIFIED DOSE

REACTIONS (2)
  - Abdominal discomfort [Recovered/Resolved]
  - Dyspnoea [Recovered/Resolved]

NARRATIVE: CASE EVENT DATE: 2014
